FAERS Safety Report 10249738 (Version 1)
Quarter: 2014Q2

REPORT INFORMATION
  Report Type: Spontaneous
  Country: JP (occurrence: JP)
  Receive Date: 20140620
  Receipt Date: 20140620
  Transmission Date: 20141212
  Serious: Yes (Hospitalization, Other)
  Sender: FDA-Public Use
  Company Number: JP-ASTELLAS-2014US007089

PATIENT
  Age: 69 Year
  Sex: Male

DRUGS (5)
  1. ERLOTINIB [Suspect]
     Indication: LUNG ADENOCARCINOMA
     Route: 048
     Dates: start: 20130308, end: 2013
  2. AVASTIN                            /01555201/ [Suspect]
     Indication: LUNG ADENOCARCINOMA
     Route: 041
     Dates: start: 20120626, end: 2013
  3. PEMETREXED DISODIUM [Suspect]
     Indication: LUNG ADENOCARCINOMA
     Route: 041
     Dates: start: 20130207, end: 201302
  4. CARBOPLATIN [Concomitant]
     Indication: LUNG ADENOCARCINOMA
     Dosage: DOSAGE IS UNCERTAIN
     Route: 041
     Dates: start: 20120626, end: 2012
  5. PACLITAXEL [Concomitant]
     Indication: LUNG ADENOCARCINOMA
     Route: 041
     Dates: start: 20120626, end: 2012

REACTIONS (4)
  - Pneumatosis intestinalis [Recovering/Resolving]
  - Hepatic function abnormal [Unknown]
  - Rash [Unknown]
  - Diarrhoea [Unknown]
